FAERS Safety Report 4996730-3 (Version None)
Quarter: 2006Q2

REPORT INFORMATION
  Report Type: 
  Country: None (occurrence: None)
  Receive Date: 20060509
  Receipt Date: 20050609
  Transmission Date: 20061013
  Serious: Yes (Hospitalization)
  Sender: FDA-Public Use
  Company Number: US-MERCK-0506USA01573

PATIENT
  Age: 65 Year
  Sex: Male
  Weight: 94 kg

DRUGS (15)
  1. VIOXX [Suspect]
     Indication: BACK PAIN
     Route: 048
     Dates: start: 20010101, end: 20041001
  2. VIOXX [Suspect]
     Indication: PAIN IN EXTREMITY
     Route: 048
     Dates: start: 20010101, end: 20041001
  3. DIOVAN [Concomitant]
     Route: 065
     Dates: start: 20010101
  4. TENORMIN [Concomitant]
     Indication: CARDIAC DISORDER
     Route: 065
     Dates: start: 20010101
  5. TENORMIN [Concomitant]
     Indication: CHEST PAIN
     Route: 065
     Dates: start: 20010101
  6. ASPIRIN [Concomitant]
     Indication: PROPHYLAXIS
     Route: 065
     Dates: start: 20010601
  7. PLAVIX [Concomitant]
     Route: 065
     Dates: start: 20030201, end: 20050601
  8. LIPITOR [Concomitant]
     Indication: BLOOD CHOLESTEROL INCREASED
     Route: 065
     Dates: start: 20010101
  9. TYLENOL (CAPLET) [Concomitant]
     Route: 065
     Dates: start: 20000101, end: 20040101
  10. NORVASC [Concomitant]
     Indication: CHEST PAIN
     Route: 065
     Dates: start: 20011001, end: 20030101
  11. NORVASC [Concomitant]
     Indication: MIGRAINE
     Route: 065
     Dates: start: 20011001, end: 20030101
  12. ECOTRIN [Concomitant]
     Route: 065
  13. ADVIL [Concomitant]
     Route: 065
  14. CELEBREX [Concomitant]
     Route: 065
  15. ZOCOR [Concomitant]
     Route: 065
     Dates: start: 20010601

REACTIONS (9)
  - ANGINA PECTORIS [None]
  - ANGINA UNSTABLE [None]
  - ARTHROPATHY [None]
  - BLOOD CHOLESTEROL INCREASED [None]
  - CORONARY ARTERY DISEASE [None]
  - DYSPEPSIA [None]
  - GASTROINTESTINAL DISORDER [None]
  - GASTROOESOPHAGEAL REFLUX DISEASE [None]
  - HYPERTENSION [None]
